FAERS Safety Report 8289323-6 (Version None)
Quarter: 2012Q2

REPORT INFORMATION
  Report Type: 
  Country: None (occurrence: None)
  Receive Date: 20120417
  Receipt Date: 20120416
  Transmission Date: 20120825
  Serious: Yes (Death, Hospitalization)
  Sender: FDA-Public Use
  Company Number: PHHY2011FR40654

PATIENT
  Sex: Female

DRUGS (16)
  1. VALSARTAN  AND HYDROCHLOROTHIAZIDE [Suspect]
     Indication: HYPERTENSION
     Dosage: 1 DF, QD
     Route: 048
  2. TRAMADOL HCL [Suspect]
     Indication: ARTHRALGIA
     Dosage: 300 MG, QD
     Route: 017
     Dates: start: 20110222, end: 20110223
  3. EUPRESSYL [Suspect]
     Indication: HYPERTENSION
     Dosage: 120 MG, QD
     Route: 048
  4. LOVENOX [Suspect]
     Indication: THROMBOSIS PROPHYLAXIS
     Dosage: 4000 IU, PER 0.4 ML
     Route: 058
     Dates: start: 20110222, end: 20110222
  5. ACETAMINOPHEN [Suspect]
     Indication: ARTHRALGIA
     Dosage: 3 G, QD
     Route: 048
     Dates: start: 20110224
  6. TRAMADOL HCL [Suspect]
     Dosage: 150 MG, QD
     Route: 048
     Dates: start: 20110225
  7. CELIPROLOL [Suspect]
     Indication: HYPERTENSION
     Dosage: 200 MG, QD
     Route: 048
  8. HYDERGINE [Suspect]
     Dosage: 4.5 MG, UNK
     Route: 048
  9. XYZAL [Suspect]
     Dosage: 10 MG,  DAY
     Route: 048
  10. FERROUS SULFATE TAB [Suspect]
     Indication: ANAEMIA
     Dosage: 1 DF, QD
     Route: 048
     Dates: start: 20110223
  11. XANAX [Suspect]
     Indication: ANXIETY
     Dosage: 0.5 MG, QD
     Route: 048
  12. ACETAMINOPHEN [Suspect]
     Indication: ARTHRALGIA
     Dosage: 1 G, Q6H
     Route: 042
     Dates: start: 20110222, end: 20110223
  13. ART [Suspect]
     Indication: OSTEOARTHRITIS
     Dosage: 100 MG, QD
     Route: 048
  14. PANTOPRAZOLE SODIUM [Suspect]
     Dosage: 40 MG, QD
     Route: 048
  15. DABIGATRAN ETEXILATE [Suspect]
     Indication: THROMBOSIS PROPHYLAXIS
     Dosage: 110 MG, BID
     Route: 048
     Dates: start: 20110223, end: 20110228
  16. LASIX [Suspect]
     Indication: HYPERTENSION
     Dosage: 60 MG, QD
     Route: 048

REACTIONS (5)
  - PAIN [None]
  - DYSPNOEA [None]
  - VENOUS INSUFFICIENCY [None]
  - HAEMOGLOBIN DECREASED [None]
  - CARDIAC ARREST [None]
